FAERS Safety Report 9355297 (Version 1)
Quarter: 2013Q2

REPORT INFORMATION
  Report Type: Spontaneous
  Country: US (occurrence: US)
  Receive Date: 20130619
  Receipt Date: 20130619
  Transmission Date: 20140414
  Serious: No
  Sender: FDA-Public Use
  Company Number: US-US-EMD SERONO, INC.-7018755

PATIENT
  Sex: Female

DRUGS (1)
  1. REBIF [Suspect]
     Indication: MULTIPLE SCLEROSIS
     Route: 058
     Dates: start: 20091103

REACTIONS (10)
  - Mood swings [Unknown]
  - Narcolepsy [Not Recovered/Not Resolved]
  - Memory impairment [Unknown]
  - Nocturia [Unknown]
  - Pain in extremity [Unknown]
  - Pollakiuria [Unknown]
  - Back pain [Unknown]
  - Fatigue [Unknown]
  - Injection site discolouration [Not Recovered/Not Resolved]
  - Pain [Not Recovered/Not Resolved]
